FAERS Safety Report 6405240-8 (Version None)
Quarter: 2009Q4

REPORT INFORMATION
  Report Type: 
  Country: None (occurrence: None)
  Receive Date: 20091019
  Receipt Date: 20091008
  Transmission Date: 20100525
  Serious: Yes (Other)
  Sender: FDA-Public Use
  Company Number: IE-JNJFOC-20091004140

PATIENT
  Age: 44 Year
  Sex: Female

DRUGS (7)
  1. REMICADE [Suspect]
     Indication: RHEUMATOID ARTHRITIS
     Route: 042
     Dates: start: 20090925, end: 20090925
  2. METHOTREXATE [Concomitant]
  3. FOLIC ACID [Concomitant]
  4. LITHIUM [Concomitant]
  5. HALOPERIDOL [Concomitant]
  6. HYDROCORTISONE [Concomitant]
  7. CHLORPHENIRAMINE MALEATE [Concomitant]

REACTIONS (4)
  - DYSPNOEA [None]
  - HOT FLUSH [None]
  - LIP SWELLING [None]
  - SINUS TACHYCARDIA [None]
